FAERS Safety Report 9511191 (Version 2)
Quarter: 2013Q3

REPORT INFORMATION
  Report Type: Spontaneous
  Country: BR (occurrence: BR)
  Receive Date: 20130910
  Receipt Date: 20130918
  Transmission Date: 20140515
  Serious: Yes (Other)
  Sender: FDA-Public Use
  Company Number: BR-AMGEN-BRASP2013063044

PATIENT
  Age: 61 Year
  Sex: Female
  Weight: 67 kg

DRUGS (5)
  1. ENBREL [Suspect]
     Indication: RHEUMATOID ARTHRITIS
     Dosage: 50 MG, ONCE WEEKLY
     Route: 058
     Dates: start: 201308
  2. ARADOIS [Concomitant]
     Indication: HYPERTENSION
     Dosage: 1 TABLET (50 MG), 1X/DAY
     Route: 048
  3. AMLODIPINE [Concomitant]
     Indication: HYPERTENSION
     Dosage: 1 TABLET (5MG), ONCE A DAY
     Route: 048
  4. SIMVASTATIN [Concomitant]
     Indication: BLOOD CHOLESTEROL ABNORMAL
     Dosage: 1 TABLET (10 MG), 1X/DAY
  5. LEVOID [Concomitant]
     Indication: THYROID DISORDER
     Dosage: 1 TABLET (50 MG), 1X/DAY

REACTIONS (6)
  - Cataract [Unknown]
  - Injection site erythema [Recovering/Resolving]
  - Injection site discolouration [Not Recovered/Not Resolved]
  - Injection site pain [Not Recovered/Not Resolved]
  - Injection site pruritus [Unknown]
  - Injection site warmth [Unknown]
